FAERS Safety Report 15683587 (Version 2)
Quarter: 2019Q3

REPORT INFORMATION
  Report Type: Spontaneous
  Country: CA (occurrence: CA)
  Receive Date: 20181204
  Receipt Date: 20190729
  Transmission Date: 20191004
  Serious: Yes (Other)
  Sender: FDA-Public Use
  Company Number: CA-TEVA-2018-CA-982030

PATIENT
  Age: 36 Year
  Sex: Male

DRUGS (9)
  1. ATORVASTATIN CALCIUM. [Concomitant]
     Active Substance: ATORVASTATIN CALCIUM
  2. ROBITUSSIN COUGH CONTROL FOR PEOPLE WITH DIABETES [Concomitant]
  3. METOPROLOL. [Concomitant]
     Active Substance: METOPROLOL
  4. HYDROCHLOROTHIAZIDE. [Concomitant]
     Active Substance: HYDROCHLOROTHIAZIDE
  5. COVERSYL [Concomitant]
     Active Substance: PERINDOPRIL
  6. LEVEMIR [Concomitant]
     Active Substance: INSULIN DETEMIR
  7. METFORMIN [Concomitant]
     Active Substance: METFORMIN HYDROCHLORIDE
  8. CLOPIDOGREL [Suspect]
     Active Substance: CLOPIDOGREL BISULFATE
     Indication: MYOCARDIAL INFARCTION
     Dosage: 75 MILLIGRAM DAILY;
     Route: 048
  9. CODEINE [Concomitant]
     Active Substance: CODEINE

REACTIONS (1)
  - Haematospermia [Unknown]
